FAERS Safety Report 9870916 (Version 1)
Quarter: 2014Q1

REPORT INFORMATION
  Report Type: Spontaneous
  Country: US (occurrence: None)
  Receive Date: 20140203
  Receipt Date: 20140203
  Transmission Date: 20141002
  Serious: Yes (Death)
  Sender: FDA-Public Use
  Company Number: AUR-APL-2014-00918

PATIENT
  Age: 58 Year
  Sex: Female

DRUGS (3)
  1. LAMOTRIGINE (LAMOTRIGINE) [Suspect]
  2. ACETAMINOPHEN (PARACETAMOL) [Suspect]
  3. ASPIRIN (ACETYLSALICYLIC ACID) [Suspect]

REACTIONS (1)
  - Toxicity to various agents [None]
